FAERS Safety Report 5088527-3 (Version None)
Quarter: 2006Q3

REPORT INFORMATION
  Report Type: 
  Country: None (occurrence: None)
  Receive Date: 20060822
  Receipt Date: 20060814
  Transmission Date: 20061208
  Serious: Yes (Hospitalization)
  Sender: FDA-Public Use
  Company Number: GXKR2006FR0470

PATIENT
  Age: 57 Year
  Sex: Male

DRUGS (3)
  1. VERAPAMIL [Suspect]
     Indication: SUPRAVENTRICULAR TACHYCARDIA
     Dosage: 240 MG, QD
  2. CALCIUM CARBONATE (CALCIUM CARBONATE) [Concomitant]
  3. ERYTHROPOIETIN (ERYTHROPOIETIN) [Concomitant]

REACTIONS (4)
  - ARRHYTHMIA SUPRAVENTRICULAR [None]
  - ATRIOVENTRICULAR BLOCK THIRD DEGREE [None]
  - BLOOD POTASSIUM INCREASED [None]
  - SYNCOPE [None]
